FAERS Safety Report 6340491-2 (Version None)
Quarter: 2009Q3

REPORT INFORMATION
  Report Type: 
  Country: None (occurrence: None)
  Receive Date: 20090904
  Receipt Date: 20090825
  Transmission Date: 20100115
  Serious: Yes (Other)
  Sender: FDA-Public Use
  Company Number: DE-JNJFOC-20090803456

PATIENT
  Age: 73 Year
  Sex: Female
  Weight: 107 kg

DRUGS (3)
  1. CAELYX [Suspect]
     Dosage: 85 MG IN TOTAL
     Route: 042
  2. CAELYX [Suspect]
     Dosage: 85 MG IN TOTAL
     Route: 042
  3. CAELYX [Suspect]
     Indication: BREAST CANCER METASTATIC
     Dosage: 85 MG IN TOTAL
     Route: 042

REACTIONS (1)
  - PEMPHIGUS [None]
